FAERS Safety Report 8791493 (Version 2)
Quarter: 2013Q1

REPORT INFORMATION
  Report Type: Spontaneous
  Country: US (occurrence: None)
  Receive Date: 20120912
  Receipt Date: 20121102
  Transmission Date: 20140127
  Serious: Yes (Disabling, Other)
  Sender: FDA-Public Use
  Company Number: DSA_59333_2012

PATIENT
  Sex: Male
  Weight: 29.48 kg

DRUGS (4)
  1. XENAZINE [Suspect]
     Indication: SYDENHAM^S CHOREA
     Route: 048
     Dates: start: 20120901, end: 20120904
  2. XENAZINE [Suspect]
     Indication: CHRONIC INFANTILE NEUROLOGICAL CUTANEOUS AND ARTICULAR SYNDROME
     Route: 048
     Dates: start: 20120901, end: 20120904
  3. RISPERDAL [Suspect]
     Indication: MUSCULAR WEAKNESS
     Route: 048
     Dates: start: 20120313, end: 20120831
  4. NEXIUM /01479303/ [Concomitant]

REACTIONS (5)
  - Muscular weakness [None]
  - Restlessness [None]
  - Balance disorder [None]
  - Gait disturbance [None]
  - Dysstasia [None]
